FAERS Safety Report 7450723-5 (Version None)
Quarter: 2011Q2

REPORT INFORMATION
  Report Type: 
  Country: None (occurrence: None)
  Receive Date: 20110429
  Receipt Date: 20110429
  Transmission Date: 20111010
  Serious: No
  Sender: FDA-Public Use
  Company Number: None

PATIENT
  Age: 69 Year
  Sex: Female
  Weight: 90.7194 kg

DRUGS (3)
  1. ENALAPRIL MALEATE [Suspect]
     Dates: start: 20080701
  2. FUROSEMIDE [Suspect]
  3. NIFEDIPINE [Suspect]
     Indication: HYPERTENSION

REACTIONS (5)
  - PRURITUS [None]
  - COUGH [None]
  - DRUG HYPERSENSITIVITY [None]
  - ALOPECIA [None]
  - INCREASED UPPER AIRWAY SECRETION [None]
